FAERS Safety Report 10383641 (Version 1)
Quarter: 2014Q3

REPORT INFORMATION
  Report Type: Spontaneous
  Country: SE (occurrence: None)
  Receive Date: 20140811
  Receipt Date: 20140811
  Transmission Date: 20150326
  Serious: Yes (Hospitalization)
  Sender: FDA-Public Use
  Company Number: 229169

PATIENT
  Age: 91 Year
  Sex: Female

DRUGS (12)
  1. MOVICOL (POLETHY.GLY. W/POTAS. CHLOR./SOD.BICARBB) [Concomitant]
  2. SOBRIL (OXAZEPAM) [Concomitant]
  3. INOLAXOL (STERCULIA URENS) [Concomitant]
  4. BISOPROLOL (BISOPROLOL) [Concomitant]
     Active Substance: BISOPROLOL
  5. TARGINIQ ER [Suspect]
     Active Substance: NALOXONE HYDROCHLORIDE\OXYCODONE HYDROCHLORIDE
     Indication: NECK PAIN
     Dosage: 1 IN 1 D, ORAL
     Route: 048
     Dates: start: 20140512, end: 20140621
  6. BEHEPAN (CYANOCOBALAMIN) [Concomitant]
  7. ALVEDON [Concomitant]
     Active Substance: ACETAMINOPHEN
  8. OXASCAND (OXAZEPAM) [Concomitant]
  9. DAIVOBET [Suspect]
     Active Substance: BETAMETHASONE DIPROPIONATE\CALCIPOTRIENE
     Indication: PRODUCT USED FOR UNKNOWN INDICATION
  10. FOLACIN (FOLIC ACID) [Concomitant]
  11. TAVEGYL (CLEMASTINE FUMARATE) [Concomitant]
  12. IMOVANE [Concomitant]
     Active Substance: ZOPICLONE

REACTIONS (5)
  - Nightmare [None]
  - Confusional state [None]
  - Anxiety [None]
  - Hallucination, visual [None]
  - Mental impairment [None]

NARRATIVE: CASE EVENT DATE: 201405
